FAERS Safety Report 13890622 (Version 8)
Quarter: 2019Q4

REPORT INFORMATION
  Report Type: Spontaneous
  Country: JP (occurrence: JP)
  Receive Date: 20170822
  Receipt Date: 20191004
  Transmission Date: 20200122
  Serious: Yes (Death, Life-Threatening, Hospitalization, Other)
  Sender: FDA-Public Use
  Company Number: JP-009507513-1708JPN002461J

PATIENT
  Age: 84 Year
  Sex: Female
  Weight: 48 kg

DRUGS (1)
  1. KEYTRUDA [Suspect]
     Active Substance: PEMBROLIZUMAB
     Indication: NON-SMALL CELL LUNG CANCER
     Dosage: 200 MG, Q3W
     Route: 041
     Dates: start: 20170602, end: 20170714

REACTIONS (4)
  - Pancreatic duct dilatation [Unknown]
  - Hepatic function abnormal [Not Recovered/Not Resolved]
  - Acute respiratory failure [Fatal]
  - Cholangitis sclerosing [Not Recovered/Not Resolved]

NARRATIVE: CASE EVENT DATE: 201707
